FAERS Safety Report 9853482 (Version 1)
Quarter: 2014Q1

REPORT INFORMATION
  Report Type: Report from Study
  Country: ES (occurrence: ES)
  Receive Date: 20140129
  Receipt Date: 20140129
  Transmission Date: 20141002
  Serious: Yes (Hospitalization, Other)
  Sender: FDA-Public Use
  Company Number: ES-VIIV HEALTHCARE LIMITED-B0907969A

PATIENT
  Age: 48 Year
  Sex: Male
  Weight: 91 kg

DRUGS (6)
  1. MARAVIROC [Suspect]
     Indication: HIV INFECTION
     Dosage: 150MG TWICE PER DAY
     Route: 048
     Dates: start: 20100607
  2. VALGANCYCLOVIR [Suspect]
     Indication: EPSTEIN-BARR VIRUS INFECTION
     Route: 048
     Dates: start: 20110801, end: 20130710
  3. RALTEGRAVIR [Concomitant]
     Indication: HIV INFECTION
     Route: 048
     Dates: start: 20100607
  4. DARUNAVIR [Concomitant]
     Indication: HIV INFECTION
     Route: 048
     Dates: start: 20100824
  5. NORVIR [Concomitant]
     Indication: HIV INFECTION
     Route: 048
     Dates: start: 20100824
  6. RITUXIMAB [Concomitant]
     Indication: LYMPHOPROLIFERATIVE DISORDER
     Route: 042
     Dates: start: 20130712, end: 20130802

REACTIONS (2)
  - Hepatic failure [Recovering/Resolving]
  - Thrombocytopenia [Not Recovered/Not Resolved]
